FAERS Safety Report 24544388 (Version 1)
Quarter: 2024Q4

REPORT INFORMATION
  Report Type: Spontaneous
  Country: DE (occurrence: DE)
  Receive Date: 20241024
  Receipt Date: 20241024
  Transmission Date: 20250115
  Serious: Yes (Hospitalization, Other)
  Sender: REGENERON
  Company Number: DE-BAYER-2024A142129

PATIENT
  Age: 76 Year
  Sex: Male

DRUGS (1)
  1. EYLEA HD [Suspect]
     Active Substance: AFLIBERCEPT
     Indication: Product used for unknown indication
     Dosage: 8 MG, ONCE, SOLUTION FOR INJECTION, 114.3 MG/ML
     Dates: start: 20240628, end: 20240628

REACTIONS (9)
  - Visual acuity reduced [Recovered/Resolved]
  - Eye haemorrhage [Unknown]
  - Vitritis [Unknown]
  - Anterior chamber cell [Unknown]
  - Vitreal cells [Unknown]
  - Eye pain [Unknown]
  - Ocular discomfort [Unknown]
  - Vision blurred [Unknown]
  - Eye irritation [Unknown]

NARRATIVE: CASE EVENT DATE: 20240101
